FAERS Safety Report 8463460-5 (Version None)
Quarter: 2012Q2

REPORT INFORMATION
  Report Type: 
  Country: None (occurrence: None)
  Receive Date: 20120625
  Receipt Date: 20120615
  Transmission Date: 20120825
  Serious: Yes (Hospitalization)
  Sender: FDA-Public Use
  Company Number: JP-PFIZER INC-2012125163

PATIENT
  Age: 71 Year
  Sex: Male
  Weight: 59 kg

DRUGS (8)
  1. AXITINIB [Suspect]
     Dosage: 2 MG, 2X/DAY
     Route: 048
     Dates: start: 20120410, end: 20120522
  2. AXITINIB [Suspect]
     Dosage: 7 MG, 2X/DAY
     Route: 048
     Dates: start: 20100827
  3. CEFAZOLIN SODIUM [Suspect]
     Indication: DIARRHOEA
     Dosage: 1 G, 3X/DAY
     Route: 048
     Dates: start: 20110607, end: 20120522
  4. CEFAZOLIN SODIUM [Suspect]
     Indication: PROPHYLAXIS AGAINST DIARRHOEA
  5. AXITINIB [Suspect]
     Dosage: 3 MG, 2X/DAY
     Route: 048
     Dates: start: 20111018
  6. AXITINIB [Suspect]
     Indication: METASTATIC RENAL CELL CARCINOMA
     Dosage: 5 MG, 2X/DAY
     Route: 048
     Dates: start: 20100803
  7. AXITINIB [Suspect]
     Dosage: 5 MG, 2X/DAY
     Route: 048
     Dates: start: 20101224
  8. LEVOTHYROXINE SODIUM [Suspect]
     Indication: HYPOTHYROIDISM
     Dosage: 50 UG, 1X/DAY
     Route: 048
     Dates: start: 20101026, end: 20120522

REACTIONS (1)
  - DIVERTICULUM INTESTINAL HAEMORRHAGIC [None]
